FAERS Safety Report 9963871 (Version 1)
Quarter: 2014Q1

REPORT INFORMATION
  Report Type: Report from Study
  Country: US (occurrence: US)
  Receive Date: 20140305
  Receipt Date: 20140305
  Transmission Date: 20141002
  Serious: No
  Sender: FDA-Public Use
  Company Number: US-ABBVIE-13P-163-1117527-00

PATIENT
  Sex: Female

DRUGS (4)
  1. HUMIRA [Suspect]
     Indication: COLITIS ULCERATIVE
     Dates: start: 20130429
  2. ASACOL [Concomitant]
     Indication: COLITIS
     Dosage: 4-6 TABS A DAY
  3. PREDNISONE [Concomitant]
     Indication: COLITIS
     Dosage: 20MG DAILY
  4. HIGH BLOOD PRESSURE MEDICATION [Concomitant]
     Indication: PRODUCT USED FOR UNKNOWN INDICATION
     Dosage: DAILY

REACTIONS (1)
  - Nail discolouration [Not Recovered/Not Resolved]
